FAERS Safety Report 16842654 (Version 4)
Quarter: 2019Q4

REPORT INFORMATION
  Report Type: Report from Study
  Country: None (occurrence: FI)
  Receive Date: 20190924
  Receipt Date: 20191016
  Transmission Date: 20200122
  Serious: Yes (Hospitalization)
  Sender: FDA-Public Use
  Company Number: FI-ABBVIE-19K-055-2929010-00

PATIENT
  Age: 77 Year
  Sex: Male

DRUGS (14)
  1. DUODOPA [Suspect]
     Active Substance: CARBIDOPA\LEVODOPA
     Dosage: MD 13 ML, CD 6.9 ML/H, ED 1 ML, 16 H TREATMENT
     Route: 050
     Dates: start: 20190909, end: 201909
  2. KARDOPAL [Concomitant]
     Indication: PRODUCT USED FOR UNKNOWN INDICATION
  3. DUODOPA [Suspect]
     Active Substance: CARBIDOPA\LEVODOPA
     Route: 050
  4. DUODOPA [Suspect]
     Active Substance: CARBIDOPA\LEVODOPA
     Dosage: MD 13ML, CD 6.8 ML/H, ED 1ML, 16H TREATMENT
     Route: 050
     Dates: start: 201909
  5. GABAPENTIN. [Concomitant]
     Active Substance: GABAPENTIN
     Indication: PRODUCT USED FOR UNKNOWN INDICATION
  6. ETORICOXIB. [Concomitant]
     Active Substance: ETORICOXIB
     Indication: PRODUCT USED FOR UNKNOWN INDICATION
     Dates: start: 20190903
  7. ARCOXIA [Concomitant]
     Active Substance: ETORICOXIB
     Indication: PRODUCT USED FOR UNKNOWN INDICATION
     Dates: start: 20190903
  8. DUODOPA [Suspect]
     Active Substance: CARBIDOPA\LEVODOPA
     Indication: PARKINSON^S DISEASE
     Route: 050
     Dates: start: 20190902, end: 20190909
  9. ZANIDIP [Concomitant]
     Active Substance: LERCANIDIPINE HYDROCHLORIDE
     Indication: BLOOD PRESSURE MEASUREMENT
  10. LOSATRIX [Concomitant]
     Active Substance: LOSARTAN POTASSIUM
     Indication: PRODUCT USED FOR UNKNOWN INDICATION
  11. DONEPEZIL. [Concomitant]
     Active Substance: DONEPEZIL
     Indication: PRODUCT USED FOR UNKNOWN INDICATION
  12. PEGORION [Concomitant]
     Active Substance: POLYETHYLENE GLYCOL 4000
     Indication: PRODUCT USED FOR UNKNOWN INDICATION
  13. PARATABS [Concomitant]
     Indication: PRODUCT USED FOR UNKNOWN INDICATION
  14. SOMAC [Concomitant]
     Active Substance: PANTOPRAZOLE SODIUM
     Indication: PRODUCT USED FOR UNKNOWN INDICATION
     Dates: start: 20190913

REACTIONS (8)
  - C-reactive protein increased [Recovered/Resolved]
  - Abdominal pain upper [Recovered/Resolved]
  - Pneumoperitoneum [Recovered/Resolved]
  - Flatulence [Recovered/Resolved]
  - Musculoskeletal pain [Recovered/Resolved]
  - Abdominal pain upper [Recovering/Resolving]
  - Peritonitis [Recovered/Resolved]
  - Urinary tract inflammation [Recovering/Resolving]

NARRATIVE: CASE EVENT DATE: 2019
